FAERS Safety Report 22598964 (Version 3)
Quarter: 2023Q2

REPORT INFORMATION
  Report Type: Report from Study
  Country: US (occurrence: US)
  Receive Date: 20230614
  Receipt Date: 20230623
  Transmission Date: 20230721
  Serious: No
  Sender: FDA-Public Use
  Company Number: US-002147023-NVSC2023US134604

PATIENT
  Sex: Female

DRUGS (1)
  1. MAYZENT [Suspect]
     Active Substance: SIPONIMOD
     Indication: Product used for unknown indication
     Dosage: UNK
     Route: 065

REACTIONS (7)
  - Incontinence [Unknown]
  - Insomnia [Unknown]
  - Infrequent bowel movements [Unknown]
  - Pollakiuria [Unknown]
  - Condition aggravated [Unknown]
  - Fluid retention [Unknown]
  - Peripheral swelling [Unknown]
